FAERS Safety Report 8785508 (Version 2)
Quarter: 2012Q4

REPORT INFORMATION
  Report Type: 
  Country: JP (occurrence: JP)
  Receive Date: 20120914
  Receipt Date: 20120928
  Transmission Date: 20130627
  Serious: Yes (Other)
  Sender: FDA-Public Use
  Company Number: JP-PFIZER INC-2012183580

PATIENT
  Age: 54 Year
  Sex: Female

DRUGS (2)
  1. JZOLOFT [Suspect]
     Indication: DEPRESSIVE SYMPTOM
     Dosage: 25 mg, daily
     Route: 048
     Dates: start: 20120720, end: 20120727
  2. LOXONIN [Suspect]
     Indication: PAIN
     Dosage: UNK

REACTIONS (2)
  - Hyperventilation [Recovering/Resolving]
  - Extrapyramidal disorder [Recovering/Resolving]
